FAERS Safety Report 21102289 (Version 2)
Quarter: 2022Q3

REPORT INFORMATION
  Report Type: Spontaneous
  Country: PL (occurrence: PL)
  Receive Date: 20220719
  Receipt Date: 20220810
  Transmission Date: 20221027
  Serious: Yes (Death, Other)
  Sender: FDA-Public Use
  Company Number: PL-NOVARTISPH-NVSC2022PL163631

PATIENT
  Age: 57 Year
  Sex: Male
  Weight: 63 kg

DRUGS (7)
  1. COSENTYX [Suspect]
     Active Substance: SECUKINUMAB
     Indication: Ankylosing spondylitis
     Dosage: 150 MG, UNKNOWN
     Route: 065
     Dates: start: 202005
  2. COSENTYX [Suspect]
     Active Substance: SECUKINUMAB
     Dosage: UNK UNK, QMO
     Route: 058
     Dates: start: 20200605, end: 20220502
  3. DEXAMETHASONE [Concomitant]
     Active Substance: DEXAMETHASONE
     Indication: Product used for unknown indication
     Dosage: UNK UNK, QMO
     Route: 058
     Dates: start: 20200605
  4. CYCLOPHOSPHAMIDE [Concomitant]
     Active Substance: CYCLOPHOSPHAMIDE
     Indication: Product used for unknown indication
     Route: 065
  5. METHOTREXATE SODIUM [Concomitant]
     Active Substance: METHOTREXATE SODIUM
     Indication: Product used for unknown indication
     Dosage: UNK
     Route: 065
  6. CYCLOSPORINE [Concomitant]
     Active Substance: CYCLOSPORINE
     Indication: Product used for unknown indication
     Dosage: UNK
     Route: 065
  7. METEX [Concomitant]
     Indication: Ankylosing spondylitis
     Dosage: 10 MG, QW
     Route: 058
     Dates: start: 1995, end: 202204

REACTIONS (10)
  - Pneumonia [Fatal]
  - Acute respiratory failure [Fatal]
  - Renal failure [Fatal]
  - Sepsis [Fatal]
  - Hypoxia [Unknown]
  - Hypokalaemia [Unknown]
  - Cough [Unknown]
  - Pyrexia [Unknown]
  - Hypocalcaemia [Unknown]
  - Hyponatraemia [Unknown]

NARRATIVE: CASE EVENT DATE: 20220522
